FAERS Safety Report 7659364-8 (Version None)
Quarter: 2011Q3

REPORT INFORMATION
  Report Type: 
  Country: None (occurrence: None)
  Receive Date: 20110802
  Receipt Date: 20110802
  Transmission Date: 20111222
  Serious: Yes (Hospitalization, Disabling, Other)
  Sender: FDA-Public Use
  Company Number: 2010SP040550

PATIENT
  Age: 36 Year
  Sex: Female
  Weight: 86.1834 kg

DRUGS (5)
  1. LEXAPRO [Suspect]
     Indication: ANXIETY
  2. ADVIL LIQUI-GELS [Concomitant]
  3. DILANTIN [Suspect]
     Indication: CONVULSION
  4. NUVARING [Suspect]
     Indication: CONTRACEPTION
     Dates: start: 20070810, end: 20080814
  5. MARIJUANA [Concomitant]

REACTIONS (65)
  - POST-TRAUMATIC STRESS DISORDER [None]
  - INSOMNIA [None]
  - MOUNTAIN SICKNESS ACUTE [None]
  - VISUAL FIELD DEFECT [None]
  - SINUS CONGESTION [None]
  - NAUSEA [None]
  - URTICARIA [None]
  - VITAMIN D DECREASED [None]
  - NIGHT SWEATS [None]
  - VERTIGO [None]
  - HETEROPHORIA [None]
  - BRAIN MIDLINE SHIFT [None]
  - AMBLYOPIA [None]
  - STRESS [None]
  - HYPOVITAMINOSIS [None]
  - HYPOAESTHESIA [None]
  - CEREBRAL HAEMORRHAGE [None]
  - EYE LASER SURGERY [None]
  - HYPERHIDROSIS [None]
  - NO THERAPEUTIC RESPONSE [None]
  - OLIGOMENORRHOEA [None]
  - BACK PAIN [None]
  - HOT FLUSH [None]
  - EPILEPSY [None]
  - CONVULSION [None]
  - OBSTRUCTION [None]
  - BRAIN OEDEMA [None]
  - ENCEPHALOMALACIA [None]
  - LIBIDO DECREASED [None]
  - GALLBLADDER DISORDER [None]
  - CHOLECYSTITIS [None]
  - DIZZINESS [None]
  - MENIERE'S DISEASE [None]
  - HYPERLIPIDAEMIA [None]
  - DEPRESSION [None]
  - AMENORRHOEA [None]
  - CEREBRAL INFARCTION [None]
  - HYPERCOAGULATION [None]
  - TRANSIENT ISCHAEMIC ATTACK [None]
  - TEMPOROMANDIBULAR JOINT SYNDROME [None]
  - NERVOUSNESS [None]
  - MUSCLE SPASMS [None]
  - HORMONE LEVEL ABNORMAL [None]
  - PREGNANCY TEST POSITIVE [None]
  - TINNITUS [None]
  - TOXICITY TO VARIOUS AGENTS [None]
  - CHOLELITHIASIS [None]
  - INTRACRANIAL VENOUS SINUS THROMBOSIS [None]
  - MUSCLE TIGHTNESS [None]
  - JAW DISORDER [None]
  - PAROSMIA [None]
  - PANIC REACTION [None]
  - DISORIENTATION [None]
  - TRANSAMINASES INCREASED [None]
  - TRANSVERSE SINUS THROMBOSIS [None]
  - SCOTOMA [None]
  - ARTERIOVENOUS MALFORMATION [None]
  - FATIGUE [None]
  - BLOOD FOLLICLE STIMULATING HORMONE INCREASED [None]
  - CYST [None]
  - CEREBROVASCULAR ACCIDENT [None]
  - DIARRHOEA [None]
  - BLOOD IRON DECREASED [None]
  - MENSTRUATION IRREGULAR [None]
  - DRUG ERUPTION [None]
